FAERS Safety Report 7109015-6 (Version None)
Quarter: 2010Q4

REPORT INFORMATION
  Report Type: 
  Country: None (occurrence: None)
  Receive Date: 20101110
  Receipt Date: 20101101
  Transmission Date: 20110411
  Serious: Yes (Other)
  Sender: FDA-Public Use
  Company Number: WAES 0712USA02490

PATIENT
  Age: 78 Year
  Sex: Female

DRUGS (8)
  1. HYZAAR [Suspect]
     Indication: HYPERTENSION
     Dosage: 1 TAB/DAILY PO
     Route: 048
     Dates: start: 20070805, end: 20070816
  2. ALDACTONE [Concomitant]
  3. AMLODIPINE BESYLATE [Concomitant]
  4. DIART [Concomitant]
  5. OLMETEC [Concomitant]
  6. OMEPRAL [Concomitant]
  7. SLOW-K [Concomitant]
  8. TAPIZOL [Concomitant]

REACTIONS (6)
  - ACTIVITIES OF DAILY LIVING IMPAIRED [None]
  - ANGER [None]
  - EYE MOVEMENT DISORDER [None]
  - FEEDING DISORDER [None]
  - MENTAL DISORDER [None]
  - PERSONALITY CHANGE [None]
